FAERS Safety Report 4279362-4 (Version None)
Quarter: 2004Q1

REPORT INFORMATION
  Report Type: 
  Country: None (occurrence: None)
  Receive Date: 20040123
  Receipt Date: 20040112
  Transmission Date: 20041129
  Serious: Yes (Hospitalization)
  Sender: FDA-Public Use
  Company Number: UK013539

PATIENT
  Age: 38 Year
  Sex: Male

DRUGS (1)
  1. KINERET [Suspect]
     Indication: RHEUMATOID ARTHRITIS
     Dosage: 100 MG, 1 IN 1 DAYS, SC
     Route: 058
     Dates: start: 20020422, end: 20020502

REACTIONS (3)
  - INFECTIVE TENOSYNOVITIS [None]
  - STAPHYLOCOCCAL INFECTION [None]
  - TENDON RUPTURE [None]
